FAERS Safety Report 7913200-0 (Version None)
Quarter: 2011Q4

REPORT INFORMATION
  Report Type: 
  Country: None (occurrence: None)
  Receive Date: 20111114
  Receipt Date: 20111103
  Transmission Date: 20120403
  Serious: Yes (Hospitalization, Other)
  Sender: FDA-Public Use
  Company Number: FR-ROCHE-772531

PATIENT
  Sex: Male
  Weight: 80 kg

DRUGS (28)
  1. MYCOPHENOLATE MOFETIL (CELLCEPT) [Suspect]
     Indication: RENAL TRANSPLANT
     Dosage: LAST DOSE PRIOR TO SAE:24 FEBRUARY 2011
     Route: 048
  2. MYCOPHENOLATE MOFETIL (CELLCEPT) [Suspect]
  3. PREDNISOLONE [Suspect]
     Indication: RENAL TRANSPLANT
     Dosage: LAST DOSE PRIOR TO SAE:13 FEBRUARY 2011
     Route: 048
  4. ARANESP [Concomitant]
     Route: 058
  5. VALGANCICLOVIR [Concomitant]
     Dosage: FREQUENCY:EVERY SECOND DAY
     Route: 048
  6. VALGANCICLOVIR [Concomitant]
     Route: 048
  7. PANTOPRAZOLE [Concomitant]
     Route: 048
  8. SODIUM BICARBONATE [Concomitant]
  9. POTASSIUM CHLORIDE [Concomitant]
     Dates: start: 20110128, end: 20110204
  10. PENTACARINAT [Concomitant]
     Route: 055
  11. WARFARIN SODIUM [Concomitant]
     Dosage: DRUG TRADE NAME:WARFARINE
  12. CINACALCET HYDROCHLORIDE [Concomitant]
  13. PREDNISOLONE [Suspect]
     Route: 048
  14. POTASSIUM CHLORIDE [Concomitant]
     Dosage: FREQUENCY: 6G/D
  15. EVEROLIMUS [Suspect]
     Route: 048
  16. PHOSPHONEUROS [Concomitant]
     Dosage: TOTAL DAILY DOSE:150 DROPS/DAY
     Route: 048
  17. PROPRANOLOL [Concomitant]
     Route: 048
  18. VENOFER [Concomitant]
     Dosage: DOSE: 100 MG/MOS.
     Route: 042
  19. LOVENOX [Concomitant]
     Dates: start: 20110104, end: 20110205
  20. MYCOPHENOLATE MOFETIL (CELLCEPT) [Suspect]
     Route: 048
  21. LASIX [Concomitant]
     Route: 048
     Dates: start: 20110124, end: 20110214
  22. LASIX [Concomitant]
     Route: 048
  23. PENTACARINAT [Concomitant]
     Dosage: DOSE: 01 AER
     Route: 055
  24. OFLOXACIN [Concomitant]
     Dates: start: 20110111, end: 20110204
  25. EVEROLIMUS [Suspect]
     Indication: RENAL TRANSPLANT
     Dosage: LAST DOSE PRIOR TO SAE:20 FEBRUARY 2011
     Route: 048
  26. ACETAMINOPHEN [Concomitant]
     Route: 048
  27. PHOSPHONEUROS [Concomitant]
     Dosage: 75 DROPS
     Route: 048
  28. LEVOTHYROXINE SODIUM [Concomitant]
     Route: 048

REACTIONS (4)
  - LYMPHOCELE [None]
  - TRANSPLANT REJECTION [None]
  - INFLAMMATION [None]
  - HYPERTHERMIA [None]
